FAERS Safety Report 23082847 (Version 1)
Quarter: 2023Q4

REPORT INFORMATION
  Report Type: Spontaneous
  Country: IT (occurrence: IT)
  Receive Date: 20231019
  Receipt Date: 20231019
  Transmission Date: 20240109
  Serious: Yes (Hospitalization)
  Sender: FDA-Public Use
  Company Number: None

PATIENT
  Age: 45 Year
  Sex: Female
  Weight: 65 kg

DRUGS (31)
  1. CAPECITABINE [Suspect]
     Active Substance: CAPECITABINE
     Indication: HER2 positive breast cancer
     Dosage: FREQUENCY 4 TIMES
     Dates: start: 20221121, end: 20221212
  2. CAPECITABINE [Suspect]
     Active Substance: CAPECITABINE
     Dates: start: 20221121, end: 20221212
  3. DOCETAXEL [Suspect]
     Active Substance: DOCETAXEL
     Indication: HER2 positive breast cancer
     Dosage: FREQUENCY: EVERY THREE WEEK, INTRAVENOUS (NOT OTHERWISE SPECIFIED), MOST RECENT DOSE PRIOR TO THE EV
     Route: 042
     Dates: start: 20170418, end: 20170418
  4. DOCETAXEL [Suspect]
     Active Substance: DOCETAXEL
     Dates: start: 20170509, end: 20170928
  5. EXEMESTANE [Suspect]
     Active Substance: EXEMESTANE
     Indication: HER2 positive breast cancer
     Dosage: MOST RECENT DOSE PRIOR TO AE 03/AUG/2020
     Dates: start: 20171019, end: 20200803
  6. TRASTUZUMAB [Suspect]
     Active Substance: TRASTUZUMAB
     Indication: HER2 positive breast cancer
     Dosage: FREQUENCY : EVERY THREE WEEK.MOST RECENT DOSE PRIOR TO THE EVENT: 21/NOV/2022 I.V. DRIP
     Route: 041
     Dates: start: 20170418, end: 20170418
  7. TRASTUZUMAB [Suspect]
     Active Substance: TRASTUZUMAB
     Dates: start: 20211020, end: 20220316
  8. TRASTUZUMAB [Suspect]
     Active Substance: TRASTUZUMAB
     Dates: start: 20170509, end: 20200803
  9. TRASTUZUMAB [Suspect]
     Active Substance: TRASTUZUMAB
     Dates: start: 20230109
  10. TRASTUZUMAB [Suspect]
     Active Substance: TRASTUZUMAB
     Dates: start: 20220316, end: 20221121
  11. TRASTUZUMAB [Suspect]
     Active Substance: TRASTUZUMAB
     Dates: start: 20221121, end: 20230109
  12. ADO-TRASTUZUMAB EMTANSINE [Suspect]
     Active Substance: ADO-TRASTUZUMAB EMTANSINE
     Indication: HER2 positive breast cancer
     Dosage: INTRAVENOUS (NOT OTHERWISE SPECIFIED) ,FRQUENCY:EVERY THREE WEEK,MOST RECENT DOSE PRIOR TO THE EVENT
     Route: 042
     Dates: start: 20200803, end: 20210927
  13. PERTUZUMAB [Suspect]
     Active Substance: PERTUZUMAB
     Indication: HER2 positive breast cancer
     Dates: start: 20170509, end: 20200803
  14. PERTUZUMAB [Suspect]
     Active Substance: PERTUZUMAB
     Dosage: INTRAVENOUS (NOT OTHERWISE SPECIFIED), FREQYENCY:EVERY THREE WEEK,MOST RECENT DOSE PRIOR TO THE EVEN
     Route: 042
     Dates: start: 20170418, end: 20170418
  15. TUCATINIB [Suspect]
     Active Substance: TUCATINIB
     Indication: HER2 positive breast cancer
     Dates: start: 20221121, end: 20221212
  16. LEUPROLIDE ACETATE [Suspect]
     Active Substance: LEUPROLIDE ACETATE
     Indication: Product used for unknown indication
     Dates: start: 20171019
  17. FUROSEMIDE [Concomitant]
     Active Substance: FUROSEMIDE
     Indication: Product used for unknown indication
     Dates: start: 20170525, end: 20170716
  18. FUROSEMIDE [Concomitant]
     Active Substance: FUROSEMIDE
     Dates: start: 20170414, end: 20170418
  19. FUROSEMIDE [Concomitant]
     Active Substance: FUROSEMIDE
     Dosage: ONGOING = CHECKED
     Dates: start: 20221012
  20. DEXAMETHASONE SODIUM PHOSPHATE [Concomitant]
     Active Substance: DEXAMETHASONE SODIUM PHOSPHATE
     Indication: HER2 positive breast cancer
     Dosage: ONGOING = CHECKED
     Dates: start: 20220921, end: 20221222
  21. DEXAMETHASONE SODIUM PHOSPHATE [Concomitant]
     Active Substance: DEXAMETHASONE SODIUM PHOSPHATE
     Dosage: ONGOING = CHECKED
     Dates: start: 20220727, end: 20221222
  22. LEVETIRACETAM [Concomitant]
     Active Substance: LEVETIRACETAM
     Indication: Product used for unknown indication
     Dosage: ONGOING = CHECKED
     Dates: start: 20210614
  23. CYANOCOBALAMIN\PYRIDOXINE\THIAMINE [Concomitant]
     Active Substance: CYANOCOBALAMIN\PYRIDOXINE\THIAMINE
     Indication: Product used for unknown indication
     Dosage: ONGOING = CHECKED
     Dates: start: 20220622
  24. LANSOPRAZOLE [Concomitant]
     Active Substance: LANSOPRAZOLE
     Indication: Product used for unknown indication
     Dosage: ONGOING = CHECKED
     Dates: start: 20201005
  25. TIOBEC [Concomitant]
     Indication: Product used for unknown indication
     Dosage: ONGOING = CHECKED
     Dates: start: 20220622, end: 20221212
  26. MOVICOL [Concomitant]
     Active Substance: POLYETHYLENE GLYCOL 3350\POTASSIUM CHLORIDE\SODIUM BICARBONATE\SODIUM CHLORIDE
     Indication: Product used for unknown indication
     Dosage: ONGOING = CHECKED
     Dates: start: 20220413
  27. FOLIC ACID [Concomitant]
     Active Substance: FOLIC ACID
     Indication: Product used for unknown indication
     Dosage: ONGOING = CHECKED
     Dates: start: 20220622
  28. ALDACTONE [Concomitant]
     Active Substance: SPIRONOLACTONE
     Indication: Product used for unknown indication
     Dosage: ONGOING = CHECKED
     Dates: start: 20221012, end: 20221222
  29. OXYCODONE [Concomitant]
     Active Substance: OXYCODONE
     Indication: Product used for unknown indication
     Dosage: ONGOING = CHECKED
     Dates: start: 20221109
  30. ARIXTRA [Concomitant]
     Active Substance: FONDAPARINUX SODIUM
     Indication: Deep vein thrombosis
     Dosage: ONGOING = CHECKED
     Dates: start: 20221111, end: 20221212
  31. ENANTONE LP [Concomitant]
     Active Substance: LEUPROLIDE ACETATE
     Indication: Product used for unknown indication
     Dosage: ONGOING = CHECKED
     Dates: start: 20171018, end: 20221212

REACTIONS (1)
  - Neurological decompensation [Not Recovered/Not Resolved]

NARRATIVE: CASE EVENT DATE: 20221212
